FAERS Safety Report 6859335-5 (Version None)
Quarter: 2010Q3

REPORT INFORMATION
  Report Type: 
  Country: None (occurrence: None)
  Receive Date: 20100719
  Receipt Date: 20080428
  Transmission Date: 20110219
  Serious: No
  Sender: FDA-Public Use
  Company Number: US-PFIZER INC-2008017555

PATIENT
  Sex: Female
  Weight: 65.9 kg

DRUGS (2)
  1. CHANTIX [Suspect]
     Indication: SMOKING CESSATION THERAPY
     Dates: start: 20071201, end: 20080216
  2. REQUIP [Concomitant]
     Indication: RESTLESS LEGS SYNDROME

REACTIONS (3)
  - DIZZINESS [None]
  - FEELING ABNORMAL [None]
  - VERTIGO [None]
